FAERS Safety Report 20324124 (Version 1)
Quarter: 2022Q1

REPORT INFORMATION
  Report Type: Spontaneous
  Country: US (occurrence: US)
  Receive Date: 20220111
  Receipt Date: 20220111
  Transmission Date: 20220423
  Serious: No
  Sender: FDA-Public Use
  Company Number: US-Fresenius Medical Care Renal Therapies Group-FMC-2112-001919

PATIENT
  Age: 78 Year
  Sex: Male

DRUGS (1)
  1. DELFLEX WITH DEXTROSE 1.5% LOW MAGNESIUM LOW CALCIUM [Suspect]
     Active Substance: CALCIUM CHLORIDE\DEXTROSE\MAGNESIUM CHLORIDE\SODIUM CHLORIDE\SODIUM LACTATE
     Indication: End stage renal disease
     Dosage: FILLS=4; FV=2300ML; DWT=2 HR. 16 MIN; TV=8900ML; TST=8 HR. 30 MIN; LFV=2000ML;
     Route: 033
     Dates: start: 20210721

REACTIONS (1)
  - Inguinal hernia [Unknown]
